FAERS Safety Report 6604300-6 (Version None)
Quarter: 2010Q1

REPORT INFORMATION
  Report Type: 
  Country: None (occurrence: None)
  Receive Date: 20100226
  Receipt Date: 20090824
  Transmission Date: 20100710
  Serious: No
  Sender: FDA-Public Use
  Company Number: A0801894A

PATIENT
  Age: 21 Year
  Sex: Female

DRUGS (3)
  1. LAMICTAL CD [Suspect]
     Indication: IRRITABILITY
     Dosage: 50MG PER DAY
     Route: 048
     Dates: start: 20090722
  2. ZOLOFT [Concomitant]
     Indication: DEPRESSION
     Dates: start: 20090421
  3. MOTRIN [Concomitant]
     Dosage: 400U AS REQUIRED

REACTIONS (4)
  - HEADACHE [None]
  - ILL-DEFINED DISORDER [None]
  - IRRITABILITY [None]
  - STRESS [None]
